FAERS Safety Report 9200525 (Version 1)
Quarter: 2013Q1

REPORT INFORMATION
  Report Type: Report from Study
  Country: US (occurrence: US)
  Receive Date: 20130329
  Receipt Date: 20130329
  Transmission Date: 20140127
  Serious: Yes (Other)
  Sender: FDA-Public Use
  Company Number: US-ABBOTT-13P-163-1067250-00

PATIENT
  Age: 57 Year
  Sex: Female

DRUGS (10)
  1. HUMIRA [Suspect]
     Indication: CROHN^S DISEASE
     Dates: start: 201104
  2. HUMIRA [Suspect]
     Route: 058
     Dates: start: 20130115
  3. HUMIRA [Suspect]
     Route: 058
  4. HUMIRA [Suspect]
     Route: 058
  5. PROZAC [Concomitant]
     Indication: DEPRESSION
     Dosage: 20MG DAILY; BEEN ON FOR YEARS
  6. LEVOTHYROXINE [Concomitant]
     Indication: BASEDOW^S DISEASE
     Dosage: 200MCG; BEEN ON FOR 9 YEARS
  7. WARFARIN [Concomitant]
     Indication: THROMBOSIS
     Dosage: 10MG DAILY; BEEN ON FOR 20 YEARS
  8. OMEPRAZOLE [Concomitant]
     Indication: PRODUCT USED FOR UNKNOWN INDICATION
     Dosage: 40MG DAILY
  9. LOSARTAN [Concomitant]
     Indication: HYPERTENSION
     Dates: start: 201110
  10. HYDROCHLOROTHIAZIDE [Concomitant]
     Indication: HYPERTENSION
     Dates: start: 201211

REACTIONS (7)
  - Knee operation [Not Recovered/Not Resolved]
  - Skin lesion [Unknown]
  - Diabetes mellitus [Unknown]
  - Diarrhoea [Not Recovered/Not Resolved]
  - Abdominal pain [Not Recovered/Not Resolved]
  - Insomnia [Unknown]
  - Drug ineffective [Unknown]
